FAERS Safety Report 5853617-1 (Version None)
Quarter: 2008Q3

REPORT INFORMATION
  Report Type: 
  Country: None (occurrence: None)
  Receive Date: 20080822
  Receipt Date: 20080715
  Transmission Date: 20090109
  Serious: No
  Sender: FDA-Public Use
  Company Number: US-BAYER-200828062NA

PATIENT
  Age: 70 Year
  Sex: Male

DRUGS (1)
  1. NEXAVAR [Suspect]
     Indication: PROSTATE CANCER

REACTIONS (3)
  - ASTHENIA [None]
  - RENAL PAIN [None]
  - URETHRAL OBSTRUCTION [None]
